FAERS Safety Report 13429161 (Version 1)
Quarter: 2017Q2

REPORT INFORMATION
  Report Type: Spontaneous
  Country: GB (occurrence: GB)
  Receive Date: 20170411
  Receipt Date: 20170411
  Transmission Date: 20170830
  Serious: Yes (Other)
  Sender: FDA-Public Use
  Company Number: PHHY2017GB051422

PATIENT
  Age: 32 Year
  Sex: Female

DRUGS (1)
  1. FLUDARABINE [Suspect]
     Active Substance: FLUDARABINE PHOSPHATE
     Indication: LARGE GRANULAR LYMPHOCYTOSIS
     Dosage: 40 MG/M2, FOR 3 DAYS FOR 1 CYCLE
     Route: 065

REACTIONS (2)
  - Drug ineffective [Unknown]
  - Aplastic anaemia [Unknown]
